FAERS Safety Report 10354239 (Version 6)
Quarter: 2014Q3

REPORT INFORMATION
  Report Type: Spontaneous
  Country: JP (occurrence: None)
  Receive Date: 20140729
  Receipt Date: 20140910
  Transmission Date: 20150326
  Serious: Yes (Death, Hospitalization, Other)
  Sender: FDA-Public Use
  Company Number: ADR-2014-01316

PATIENT
  Age: 63 Year
  Sex: Male

DRUGS (1)
  1. GABALON INTRATHECAL (0.2%) [Suspect]
     Active Substance: BACLOFEN
     Indication: CEREBRAL HAEMORRHAGE
     Dosage: 90MCG/DAY
     Dates: start: 20140109, end: 20140318

REACTIONS (6)
  - Bronchitis [None]
  - Asphyxia [None]
  - Dyspnoea [None]
  - Pneumonia aspiration [None]
  - Foreign body aspiration [None]
  - Respiratory failure [None]

NARRATIVE: CASE EVENT DATE: 20140318
